FAERS Safety Report 7122585-7 (Version None)
Quarter: 2010Q4

REPORT INFORMATION
  Report Type: 
  Country: None (occurrence: None)
  Receive Date: 20101124
  Receipt Date: 20101026
  Transmission Date: 20110411
  Serious: No
  Sender: FDA-Public Use
  Company Number: US-BAYER-201043761GPV

PATIENT
  Sex: Male

DRUGS (1)
  1. HELIXATE FS [Suspect]

REACTIONS (1)
  - NO ADVERSE EVENT [None]
